FAERS Safety Report 6610829-7 (Version None)
Quarter: 2010Q1

REPORT INFORMATION
  Report Type: 
  Country: None (occurrence: None)
  Receive Date: 20100302
  Receipt Date: 20100225
  Transmission Date: 20100710
  Serious: Yes (Other)
  Sender: FDA-Public Use
  Company Number: DE-AMGEN-UK376993

PATIENT
  Sex: Female
  Weight: 82 kg

DRUGS (4)
  1. NPLATE [Suspect]
     Indication: IDIOPATHIC THROMBOCYTOPENIC PURPURA
     Route: 058
     Dates: start: 20091118, end: 20100224
  2. ATACAND [Concomitant]
     Route: 048
     Dates: start: 20090710
  3. BISOPROLOL [Concomitant]
     Route: 048
     Dates: start: 20090710
  4. TORASEMIDE [Concomitant]
     Route: 048
     Dates: start: 20090710

REACTIONS (3)
  - MEDICATION ERROR [None]
  - PLATELET COUNT DECREASED [None]
  - THERAPEUTIC RESPONSE DECREASED [None]
